FAERS Safety Report 5012281-4 (Version None)
Quarter: 2006Q2

REPORT INFORMATION
  Report Type: 
  Country: None (occurrence: None)
  Receive Date: 20060410
  Receipt Date: 20050303
  Transmission Date: 20061013
  Serious: Yes (Hospitalization)
  Sender: FDA-Public Use
  Company Number: 05P-163-0292776-00

PATIENT
  Sex: Male
  Weight: 109 kg

DRUGS (2)
  1. DEPAKOTE [Suspect]
     Indication: MANIA
     Dosage: PER ORAL
     Route: 048
  2. RISPERIDONE [Suspect]
     Dosage: PER ORAL
     Route: 048

REACTIONS (2)
  - MANIA [None]
  - PETECHIAE [None]
